FAERS Safety Report 16978907 (Version 1)
Quarter: 2019Q4

REPORT INFORMATION
  Report Type: Spontaneous
  Country: US (occurrence: US)
  Receive Date: 20190916
  Receipt Date: 20190916
  Transmission Date: 20200122
  Serious: No
  Sender: FDA-Public Use
  Company Number: None

PATIENT
  Age: 63 Year
  Sex: Male
  Weight: 130.63 kg

DRUGS (17)
  1. NITROSRAT 0.4MG SUBLINGUAL [Concomitant]
  2. METOLAZONE 2.5 MG [Concomitant]
  3. LANTUS SUBQ [Concomitant]
  4. COMBLVENT INHL [Concomitant]
  5. ASPIRIN 81MG [Concomitant]
     Active Substance: ASPIRIN
  6. CHLORTHALIDONE 25MG [Concomitant]
     Active Substance: CHLORTHALIDONE
  7. PROTONIX [Concomitant]
     Active Substance: PANTOPRAZOLE SODIUM
  8. PROAIR HFA [Concomitant]
     Active Substance: ALBUTEROL SULFATE
  9. ATENOLOL 50MG [Concomitant]
     Active Substance: ATENOLOL
  10. SIMVASTATIN 40 MG [Concomitant]
     Active Substance: SIMVASTATIN
  11. VITAMIN D [Concomitant]
     Active Substance: VITAMIN D NOS
  12. QUINAPRIL 40MG [Concomitant]
  13. FUROSEMIDE 40 MG [Concomitant]
     Active Substance: FUROSEMIDE
  14. HUMALOG SUBCUTANEOUS [Concomitant]
  15. PLAVIX [Concomitant]
     Active Substance: CLOPIDOGREL BISULFATE
  16. EPLERENONE 50 [Concomitant]
  17. RANOLAZINE 500MG [Suspect]
     Active Substance: RANOLAZINE
     Indication: CHEST PAIN
     Route: 048

REACTIONS (8)
  - Dyspnoea exertional [None]
  - Fatigue [None]
  - Skin ulcer [None]
  - Electrocardiogram T wave abnormal [None]
  - Diet noncompliance [None]
  - Sinus bradycardia [None]
  - Oedema peripheral [None]
  - Weight loss poor [None]
